FAERS Safety Report 8616659-9 (Version None)
Quarter: 2012Q3

REPORT INFORMATION
  Report Type: 
  Country: None (occurrence: None)
  Receive Date: 20120823
  Receipt Date: 20120817
  Transmission Date: 20120928
  Serious: Yes (Life-Threatening, Other)
  Sender: FDA-Public Use
  Company Number: CR-ELI_LILLY_AND_COMPANY-CR201204006182

PATIENT
  Age: 69 Year
  Sex: Male

DRUGS (8)
  1. VALSARTAN [Concomitant]
     Indication: HYPERTENSION
  2. EZETIMIBE/SAMVASTATIN [Concomitant]
     Indication: DYSLIPIDAEMIA
  3. AMARYL [Concomitant]
  4. HYDROCHLOROTHIAZIDE [Concomitant]
     Indication: HYPERTENSION
  5. EXENATIDE [Suspect]
     Indication: DIABETES MELLITUS
     Dosage: 5 UG, BID
     Dates: start: 20120116, end: 20120308
  6. JANUVIA [Concomitant]
  7. PIOGLITAZONE HCL [Concomitant]
  8. METFORMIN HCL [Concomitant]

REACTIONS (1)
  - HEPATIC NEOPLASM MALIGNANT [None]
